FAERS Safety Report 24364699 (Version 1)
Quarter: 2024Q3

REPORT INFORMATION
  Report Type: Spontaneous
  Country: US (occurrence: US)
  Receive Date: 20240926
  Receipt Date: 20240926
  Transmission Date: 20241017
  Serious: Yes (Hospitalization, Other)
  Sender: NOVO NORDISK
  Company Number: None

PATIENT
  Sex: Female

DRUGS (1)
  1. OZEMPIC [Suspect]
     Active Substance: SEMAGLUTIDE
     Indication: Product used for unknown indication
     Dosage: 2 MG
     Route: 058
     Dates: start: 20240722

REACTIONS (9)
  - Hypertension [Unknown]
  - Nervousness [Unknown]
  - Feeling abnormal [Unknown]
  - Sinus tachycardia [Not Recovered/Not Resolved]
  - Hypoglycaemia [Unknown]
  - Nausea [Unknown]
  - Suspected counterfeit product [Unknown]
  - Drug effect faster than expected [Unknown]
  - Drug dose titration not performed [Unknown]

NARRATIVE: CASE EVENT DATE: 20240722
